FAERS Safety Report 18270726 (Version 2)
Quarter: 2022Q4

REPORT INFORMATION
  Report Type: Spontaneous
  Country: DE (occurrence: DE)
  Receive Date: 20200915
  Receipt Date: 20221018
  Transmission Date: 20230113
  Serious: Yes (Hospitalization, Other)
  Sender: FDA-Public Use
  Company Number: DE-ADRED-05469-01

PATIENT
  Age: 85 Year
  Sex: Female
  Weight: 80 kg

DRUGS (3)
  1. DABIGATRAN [Suspect]
     Active Substance: DABIGATRAN
     Indication: Product used for unknown indication
     Route: 048
  2. METOPROLOL [Concomitant]
     Active Substance: METOPROLOL
     Indication: Product used for unknown indication
     Route: 048
  3. RAMIPRIL [Concomitant]
     Active Substance: RAMIPRIL
     Indication: Product used for unknown indication
     Route: 048

REACTIONS (8)
  - Fatigue [Unknown]
  - General physical health deterioration [Unknown]
  - Urogenital haemorrhage [Unknown]
  - Tumour haemorrhage [Unknown]
  - Haematuria [Unknown]
  - Pallor [Unknown]
  - Anaemia [Unknown]
  - Haematuria [Unknown]
